FAERS Safety Report 9347090 (Version 3)
Quarter: 2013Q3

REPORT INFORMATION
  Report Type: Report from Study
  Country: JP (occurrence: JP)
  Receive Date: 20130613
  Receipt Date: 20130709
  Transmission Date: 20140515
  Serious: Yes (Hospitalization)
  Sender: FDA-Public Use
  Company Number: JP-GLAXOSMITHKLINE-B0898013A

PATIENT
  Age: 57 Year
  Sex: Female

DRUGS (1)
  1. VOTRIENT [Suspect]
     Indication: LEIOMYOSARCOMA
     Dosage: 600MG PER DAY
     Route: 048
     Dates: start: 20130416

REACTIONS (1)
  - Renal failure [Recovered/Resolved]
